FAERS Safety Report 17509730 (Version 1)
Quarter: 2020Q1

REPORT INFORMATION
  Report Type: Spontaneous
  Country: US (occurrence: US)
  Receive Date: 20200226
  Receipt Date: 20200226
  Transmission Date: 20200409
  Serious: No
  Sender: FDA-Public Use
  Company Number: None

PATIENT
  Age: 58 Year
  Sex: Female

DRUGS (3)
  1. LETAIRIS [Concomitant]
     Active Substance: AMBRISENTAN
  2. HUMIRA [Concomitant]
     Active Substance: ADALIMUMAB
  3. AMBRISENTAN 10MG TAB [Suspect]
     Active Substance: AMBRISENTAN
     Indication: PULMONARY HYPERTENSION
     Route: 048

REACTIONS (5)
  - Therapy cessation [None]
  - Fall [None]
  - Rib fracture [None]
  - Thoracic haemorrhage [None]
  - Insurance issue [None]

NARRATIVE: CASE EVENT DATE: 20200110
